FAERS Safety Report 16923509 (Version 1)
Quarter: 2019Q4

REPORT INFORMATION
  Report Type: Report from Study
  Country: IN (occurrence: IN)
  Receive Date: 20191016
  Receipt Date: 20191016
  Transmission Date: 20200122
  Serious: Yes (Death, Other)
  Sender: FDA-Public Use
  Company Number: IN-ROCHE-2438952

PATIENT

DRUGS (6)
  1. TACROLIMUS. [Suspect]
     Active Substance: TACROLIMUS
     Indication: PROPHYLAXIS AGAINST TRANSPLANT REJECTION
     Dosage: 8-10 NG/ML IN THE FIRST 3 MONTHS?7.5-8.5 NG/ML BY 6 MONTHS?6-7.5 NG/ML BY THE END OF ONE YEAR.
     Route: 065
  2. EVEROLIMUS. [Suspect]
     Active Substance: EVEROLIMUS
     Indication: PROPHYLAXIS AGAINST TRANSPLANT REJECTION
     Dosage: 4.5-5.5 NG/ML
     Route: 065
  3. DEXAMETHASONE. [Suspect]
     Active Substance: DEXAMETHASONE
     Indication: PROPHYLAXIS AGAINST TRANSPLANT REJECTION
     Dosage: ON DAY 1?DISCONTINUED BY POSTOPERATIVE DAY 5
     Route: 042
  4. RITUXIMAB. [Suspect]
     Active Substance: RITUXIMAB
     Indication: PROPHYLAXIS AGAINST TRANSPLANT REJECTION
     Route: 041
  5. MYCOPHENOLATE MOFETIL. [Suspect]
     Active Substance: MYCOPHENOLATE MOFETIL
     Indication: PROPHYLAXIS AGAINST TRANSPLANT REJECTION
     Route: 065
  6. METHYLPREDNISOLONE. [Suspect]
     Active Substance: METHYLPREDNISOLONE
     Indication: PROPHYLAXIS AGAINST TRANSPLANT REJECTION
     Dosage: ON DAY 0
     Route: 042

REACTIONS (13)
  - Tuberculosis [Unknown]
  - BK virus infection [Unknown]
  - Leukopenia [Unknown]
  - Renal tuberculosis [Unknown]
  - Post transplant lymphoproliferative disorder [Unknown]
  - Infection [Fatal]
  - Chronic hepatitis [Fatal]
  - Treatment noncompliance [Fatal]
  - Neoplasm malignant [Unknown]
  - Parvovirus infection [Unknown]
  - Toxicity to various agents [Unknown]
  - Viraemia [Unknown]
  - Fungal infection [Unknown]
